FAERS Safety Report 25540062 (Version 3)
Quarter: 2025Q4

REPORT INFORMATION
  Report Type: Report from Study
  Country: US (occurrence: US)
  Receive Date: 20250710
  Receipt Date: 20251218
  Transmission Date: 20260118
  Serious: Yes (Hospitalization, Other)
  Sender: XERIS PHARMACEUTICALS
  Company Number: US-BRIAN CONNER SVP QUALITY AND CHIEF COMPLIANCE OFFICER-2025XER00475

PATIENT
  Sex: Female

DRUGS (5)
  1. RECORLEV [Suspect]
     Active Substance: LEVOKETOCONAZOLE
     Indication: Cushing^s syndrome
     Dosage: UNK
     Route: 048
     Dates: start: 20230926
  2. RECORLEV [Suspect]
     Active Substance: LEVOKETOCONAZOLE
     Dosage: 300 MG, 1X/DAY (IN THE MORNING)
     Route: 048
     Dates: start: 2025, end: 2025
  3. RECORLEV [Suspect]
     Active Substance: LEVOKETOCONAZOLE
     Dosage: 450 MG, 1X/DAY (AT NIGHT)
     Route: 048
     Dates: start: 2025, end: 2025
  4. RECORLEV [Suspect]
     Active Substance: LEVOKETOCONAZOLE
     Dosage: 300 MG, 1X/DAY (IN THE MORNING)
     Route: 048
     Dates: start: 2025
  5. RECORLEV [Suspect]
     Active Substance: LEVOKETOCONAZOLE
     Dosage: 450 MG, 1X/DAY (EVERY NIGHT)
     Route: 048
     Dates: start: 2025

REACTIONS (6)
  - Hospitalisation [Recovering/Resolving]
  - Pituitary tumour [Recovering/Resolving]
  - Surgery [Unknown]
  - Visual impairment [Not Recovered/Not Resolved]
  - Alopecia [Not Recovered/Not Resolved]
  - Product use issue [Unknown]

NARRATIVE: CASE EVENT DATE: 20250101
